FAERS Safety Report 6890431-2 (Version None)
Quarter: 2010Q3

REPORT INFORMATION
  Report Type: 
  Country: None (occurrence: None)
  Receive Date: 20100730
  Receipt Date: 20081022
  Transmission Date: 20110219
  Serious: No
  Sender: FDA-Public Use
  Company Number: US-PFIZER INC-2008077192

PATIENT
  Age: 94 Year
  Sex: Female

DRUGS (1)
  1. LIPITOR [Suspect]
     Dates: start: 20030101

REACTIONS (5)
  - ARTHRITIS [None]
  - DRUG HYPERSENSITIVITY [None]
  - INSOMNIA [None]
  - MUSCLE TWITCHING [None]
  - PAIN IN EXTREMITY [None]
